FAERS Safety Report 12331150 (Version 2)
Quarter: 2016Q2

REPORT INFORMATION
  Report Type: Report from Study
  Country: US (occurrence: US)
  Receive Date: 20160504
  Receipt Date: 20160505
  Transmission Date: 20160815
  Serious: Yes (Hospitalization)
  Sender: FDA-Public Use
  Company Number: US-SA-2016SA084112

PATIENT
  Age: 79 Year
  Sex: Female

DRUGS (13)
  1. ASPIRIN. [Concomitant]
     Active Substance: ASPIRIN
  2. SEPTRA [Concomitant]
     Active Substance: SULFAMETHOXAZOLE\TRIMETHOPRIM
     Dosage: 200/40 MG/5ML ORAL LIQUID.
  3. CEREZYME [Suspect]
     Active Substance: IMIGLUCERASE
     Indication: GAUCHER^S DISEASE TYPE I
     Dosage: DOSE:30 UNIT(S)/KILOGRAM BODYWEIGHT
     Route: 041
     Dates: start: 19980728
  4. LEXAPRO [Concomitant]
     Active Substance: ESCITALOPRAM OXALATE
     Dosage: DOSE:5 MILLIGRAM(S)/MILLILITRE
  5. LASIX [Concomitant]
     Active Substance: FUROSEMIDE
  6. BACTROBAN [Concomitant]
     Active Substance: MUPIROCIN\MUPIROCIN CALCIUM
  7. DRISDOL [Concomitant]
     Active Substance: ERGOCALCIFEROL
     Dosage: DOSE:50000 UNIT(S)
  8. METOPROLOL. [Concomitant]
     Active Substance: METOPROLOL
  9. TOPICORT [Concomitant]
     Active Substance: DESOXIMETASONE
  10. PROTONIX [Concomitant]
     Active Substance: PANTOPRAZOLE SODIUM
  11. ALENDRONATE [Concomitant]
     Active Substance: ALENDRONATE SODIUM
  12. CELEXA [Concomitant]
     Active Substance: CITALOPRAM HYDROBROMIDE
  13. BACTRIM [Concomitant]
     Active Substance: SULFAMETHOXAZOLE\TRIMETHOPRIM
     Dosage: 200/40 MG/5ML ORAL LIQUID.

REACTIONS (6)
  - Pleural effusion [Not Recovered/Not Resolved]
  - Erythema [Not Recovered/Not Resolved]
  - Oedema peripheral [Not Recovered/Not Resolved]
  - Dyspnoea exertional [Not Recovered/Not Resolved]
  - Cardiac failure congestive [Not Recovered/Not Resolved]
  - Pain in extremity [Not Recovered/Not Resolved]

NARRATIVE: CASE EVENT DATE: 2016
